FAERS Safety Report 9905474 (Version 1)
Quarter: 2013Q2

REPORT INFORMATION
  Report Type: Spontaneous
  Country: US (occurrence: None)
  Receive Date: 20130305
  Receipt Date: 20130305
  Transmission Date: 20140414
  Serious: Yes (Death, Hospitalization)
  Sender: FDA-Public Use
  Company Number: 163-21880-12041641

PATIENT
  Age: 76 Year
  Sex: Male
  Weight: 72.58 kg

DRUGS (7)
  1. REVLIMID (LENALIDOMIDE) (15 MILLIGRAM, CAPSULES) [Suspect]
     Indication: PLASMA CELL MYELOMA
     Dosage: 15 MG, 1 IN 1 D, PO
     Route: 048
     Dates: start: 201004, end: 2010
  2. THALOMID (THALIDOMIDE) (CAPSULES) [Suspect]
     Indication: PLASMA CELL MYELOMA
     Route: 048
     Dates: start: 201110
  3. TREANDA (BENDAMUSTINE HYDROCHLORIDE) (UNKNOWN) [Concomitant]
  4. DECADRON (DEXAMETHASONE) (UNKNOWN) [Concomitant]
  5. CARVEDILOL (CARVEDILOL) (UNKNOWN) [Concomitant]
  6. ALLOPURINOL (ALLOPURINOL) (UNKNOWN) [Concomitant]
  7. OMEPRAZOLE (OMEPRAZOLE) (UNKNOWN) [Concomitant]

REACTIONS (2)
  - Cerebral haemorrhage [None]
  - Thrombocytopenia [None]
